FAERS Safety Report 18576232 (Version 1)
Quarter: 2020Q4

REPORT INFORMATION
  Report Type: Spontaneous
  Country: US (occurrence: US)
  Receive Date: 20201203
  Receipt Date: 20201203
  Transmission Date: 20210114
  Serious: No
  Sender: FDA-Public Use
  Company Number: US-PFIZER INC-2020473532

PATIENT
  Age: 58 Year
  Sex: Female

DRUGS (1)
  1. XELJANZ XR [Suspect]
     Active Substance: TOFACITINIB CITRATE
     Indication: PSORIASIS
     Dosage: 11 MG
     Dates: start: 20200701

REACTIONS (12)
  - Diarrhoea [Unknown]
  - Drug effective for unapproved indication [Unknown]
  - Nail pitting [Unknown]
  - Off label use [Unknown]
  - Musculoskeletal stiffness [Not Recovered/Not Resolved]
  - Synovial cyst [Recovered/Resolved]
  - Onycholysis [Recovered/Resolved]
  - Gastric disorder [Unknown]
  - Nail disorder [Unknown]
  - Nail ridging [Unknown]
  - Frequent bowel movements [Unknown]
  - Onychoclasis [Unknown]

NARRATIVE: CASE EVENT DATE: 2020
